FAERS Safety Report 7529150 (Version 2)
Quarter: 2013Q4

REPORT INFORMATION
  Report Type: Spontaneous
  Country: US (occurrence: US)
  Receive Date: 20100805
  Receipt Date: 20131121
  Transmission Date: 20140711
  Serious: Yes (Other)
  Sender: FDA-Public Use
  Company Number: US-JNJFOC-20100503536

PATIENT
  Age: 49 Year
  Sex: 0

DRUGS (1)
  1. LEVAQUIN [Suspect]
     Indication: INFECTION
     Route: 048
     Dates: start: 20080124, end: 20080203

REACTIONS (4)
  - Tendon rupture [Unknown]
  - Tendon rupture [Unknown]
  - Tenosynovitis [Unknown]
  - Joint injury [Unknown]
